FAERS Safety Report 4645740-4 (Version None)
Quarter: 2005Q2

REPORT INFORMATION
  Report Type: 
  Country: None (occurrence: None)
  Receive Date: 20050425
  Receipt Date: 20050425
  Transmission Date: 20051028
  Serious: Yes (Hospitalization, Other)
  Sender: FDA-Public Use
  Company Number: None

PATIENT
  Sex: Male
  Weight: 75.5 kg

DRUGS (2)
  1. CISPLATIN [Suspect]
     Dosage: 100MG/M2 ON DAYS 1 AND 22
     Dates: start: 20050201
  2. RADIATION THERAPY [Suspect]
     Dosage: ACCELERATED FRACTIONATION BY CONCOMITANT BOOST 72 GY/42 FX FOR 6 WEEKS

REACTIONS (5)
  - APHAGIA [None]
  - BLOOD UREA INCREASED [None]
  - ODYNOPHAGIA [None]
  - PHARYNGEAL ERYTHEMA [None]
  - WHITE BLOOD CELL COUNT DECREASED [None]
